FAERS Safety Report 5673596-X (Version None)
Quarter: 2008Q2

REPORT INFORMATION
  Report Type: 
  Country: None (occurrence: None)
  Receive Date: 20080226
  Receipt Date: 20070829
  Transmission Date: 20081010
  Serious: Yes (Other)
  Sender: FDA-Public Use
  Company Number: 514175

PATIENT
  Age: 16 Year
  Sex: Female

DRUGS (1)
  1. ACCUTANE [Suspect]
     Indication: ACNE
     Dosage: 3 DOSE FORM ORAL
     Route: 048
     Dates: start: 20070226, end: 20070829

REACTIONS (3)
  - DERMAL CYST [None]
  - NIGHT BLINDNESS [None]
  - VISION BLURRED [None]
